FAERS Safety Report 7740222-5 (Version None)
Quarter: 2011Q3

REPORT INFORMATION
  Report Type: 
  Country: None (occurrence: None)
  Receive Date: 20110909
  Receipt Date: 20110909
  Transmission Date: 20111222
  Serious: No
  Sender: FDA-Public Use
  Company Number: None

PATIENT
  Age: 25 Year
  Sex: Male
  Weight: 72.574 kg

DRUGS (2)
  1. VIIBRYD [Suspect]
     Indication: DEPRESSION
     Dosage: 20 MG
     Route: 048
     Dates: start: 20110901, end: 20110907
  2. VIIBRYD [Suspect]
     Indication: ANXIETY
     Dosage: 20 MG
     Route: 048
     Dates: start: 20110901, end: 20110907

REACTIONS (4)
  - PANIC ATTACK [None]
  - ABNORMAL DREAMS [None]
  - MENTAL DISORDER [None]
  - SUICIDAL IDEATION [None]
